FAERS Safety Report 5874630-4 (Version None)
Quarter: 2008Q3

REPORT INFORMATION
  Report Type: 
  Country: None (occurrence: None)
  Receive Date: 20080902
  Receipt Date: 20080826
  Transmission Date: 20090109
  Serious: Yes (Death)
  Sender: FDA-Public Use
  Company Number: 20074332

PATIENT
  Sex: Male
  Weight: 43 kg

DRUGS (11)
  1. LIORESAL [Suspect]
     Indication: MUSCLE SPASTICITY
     Dosage: 57.5-75.0 MCG, DAILY, INTRATHECAL
     Route: 037
     Dates: start: 20070301
  2. BOTOX [Concomitant]
  3. EXCEGRAN [Concomitant]
  4. LEVOTHYROXINE SODIUM [Concomitant]
  5. MYONAL [Concomitant]
  6. GRANDAXIN [Concomitant]
  7. DANTRIUM [Concomitant]
  8. DIAZEPAM [Concomitant]
  9. PANTOSIN [Concomitant]
  10. LANSOPRAZOLE [Concomitant]
  11. PHENOBARB [Concomitant]

REACTIONS (17)
  - ALTERED STATE OF CONSCIOUSNESS [None]
  - ANAEMIA [None]
  - CARDIAC FAILURE [None]
  - CONVULSION [None]
  - CYANOSIS [None]
  - DIALYSIS [None]
  - DISSEMINATED INTRAVASCULAR COAGULATION [None]
  - DRUG INEFFECTIVE [None]
  - DRUG WITHDRAWAL SYNDROME [None]
  - GASTRIC ULCER [None]
  - GLUCOSE TOLERANCE IMPAIRED [None]
  - HYPERHIDROSIS [None]
  - MULTI-ORGAN FAILURE [None]
  - PYREXIA [None]
  - RHABDOMYOLYSIS [None]
  - SEPSIS [None]
  - SHOCK [None]
